FAERS Safety Report 6699466-6 (Version None)
Quarter: 2010Q2

REPORT INFORMATION
  Report Type: 
  Country: None (occurrence: None)
  Receive Date: 20100426
  Receipt Date: 20100415
  Transmission Date: 20101027
  Serious: Yes (Other)
  Sender: FDA-Public Use
  Company Number: AXC-2010-000100

PATIENT
  Age: 55 Year
  Sex: Female

DRUGS (24)
  1. CARAFATE [Suspect]
     Indication: GASTROOESOPHAGEAL REFLUX DISEASE
     Dosage: 1 G QD, ORAL
     Route: 048
  2. LOZOL [Suspect]
     Indication: FLUID RETENTION
     Dosage: 1,25 MG, QD, ORAL
     Route: 048
     Dates: start: 20020101
  3. ZYRTEC [Suspect]
     Indication: MULTIPLE ALLERGIES
     Dosage: 10 MD, QD
     Dates: start: 20090101
  4. GABAPENTIN [Suspect]
     Indication: DIABETIC NEUROPATHY
     Dates: start: 20040101
  5. GABAPENTIN [Suspect]
     Indication: FIBROMYALGIA
     Dates: start: 20040101
  6. VICODIN [Suspect]
     Indication: ARTHRALGIA
     Dosage: 7.5MG/325 MG,Q4TH
     Dates: start: 20060101
  7. ZANAFLEX [Suspect]
     Indication: MUSCLE SPASMS
     Dosage: 2 MG, BID
     Dates: start: 20090101
  8. VALSARTAN [Suspect]
     Indication: HYPERTENSION
     Dosage: 160 MG QD
     Dates: start: 20020101
  9. BUPROPION HCL [Suspect]
     Indication: DEPRESSION
     Dosage: 300 MG, QD
  10. METFORMIN  /00082702/ METFORMIN [Suspect]
     Indication: DIABETES MELLITUS
     Dosage: 500 MG, QD
  11. JANUMET [Suspect]
     Indication: DIABETES MELLITUS
     Dosage: 50/500 MG, QD
  12. KLONOPIN [Suspect]
     Indication: ANXIETY
     Dosage: 0.5 MG, BID
  13. PRILOSEC [Suspect]
     Indication: GASTROOESOPHAGEAL REFLUX DISEASE
  14. AGGRENOX [Suspect]
     Indication: DRUG USE FOR UNKNOWN INDICATION
     Dates: start: 20091201
  15. FLONASE [Suspect]
     Indication: HYPERSENSITIVITY
     Dosage: 50 UG, NASAL
     Route: 045
  16. FLOVENT [Suspect]
     Indication: ASTHMA
     Dosage: 220 UG, BID
  17. VENTOLIN [Suspect]
     Indication: DRUG USE FOR UNKNOWN INDICATION
  18. IMITREX [Suspect]
     Indication: MIGRAINE
     Dosage: 100 MG, PRN
  19. NITROLINGUAL (GLYCERYL TRINITRATE) [Suspect]
     Indication: CHEST PAIN
     Dosage: 0.4 MG, PRN
  20. EPIPEN [Suspect]
     Indication: MULTIPLE ALLERGIES
     Dosage: TRANSDERMAL
     Route: 062
  21. LORTAB [Suspect]
     Indication: DRUG USE FOR UNKNOWN INDICATION
     Dosage: ORAL
     Route: 048
  22. SIMVASTATIN [Suspect]
     Indication: DRUG USE FOR UNKNOWN INDICATION
  23. MULTI-VITAMINS [Suspect]
     Indication: DRUG USE FOR UNKNOWN INDICATION
  24. FLEXERIL [Concomitant]

REACTIONS (3)
  - CONDITION AGGRAVATED [None]
  - FEELING ABNORMAL [None]
  - MEMORY IMPAIRMENT [None]
